FAERS Safety Report 19421748 (Version 1)
Quarter: 2021Q2

REPORT INFORMATION
  Report Type: Spontaneous
  Country: US (occurrence: US)
  Receive Date: 20210616
  Receipt Date: 20210616
  Transmission Date: 20210717
  Serious: Yes (Other)
  Sender: FDA-Public Use
  Company Number: US-SA-2021SA197426

PATIENT
  Sex: Male
  Weight: 79.37 kg

DRUGS (11)
  1. FLAXSEED [Concomitant]
     Active Substance: FLAX SEED
  2. EPINEPHRINE. [Concomitant]
     Active Substance: EPINEPHRINE
  3. LOSARTAN. [Concomitant]
     Active Substance: LOSARTAN
  4. TURMERIC [CURCUMA LONGA] [Concomitant]
     Active Substance: HERBALS\TURMERIC
  5. HEPARIN [Concomitant]
     Active Substance: HEPARIN SODIUM
  6. ZYRTEC [Concomitant]
     Active Substance: CETIRIZINE HYDROCHLORIDE
  7. FISH OIL [Concomitant]
     Active Substance: FISH OIL
  8. DIPHENHYDRAMINE. [Concomitant]
     Active Substance: DIPHENHYDRAMINE
  9. NORMAL SALINE [Concomitant]
     Active Substance: SODIUM CHLORIDE
  10. STERILE WATER FOR INJECTION HUONS [Concomitant]
  11. LUMIZYME [Suspect]
     Active Substance: ALGLUCOSIDASE ALFA
     Indication: GLYCOGEN STORAGE DISEASE TYPE II
     Dosage: 21.41 MG/KG (1700 MG), QOW
     Route: 041
     Dates: start: 20200709

REACTIONS (1)
  - Respiratory tract infection [Unknown]
